FAERS Safety Report 8027003-2 (Version None)
Quarter: 2012Q1

REPORT INFORMATION
  Report Type: 
  Country: None (occurrence: None)
  Receive Date: 20120106
  Receipt Date: 20120103
  Transmission Date: 20120608
  Serious: Yes (Other)
  Sender: FDA-Public Use
  Company Number: US-PFIZER INC-2012001548

PATIENT
  Sex: Male
  Weight: 74.83 kg

DRUGS (8)
  1. CARDIZEM [Concomitant]
     Indication: HYPERTENSION
     Dosage: UNK
  2. PROSCAR [Concomitant]
     Dosage: UNK
  3. IRON [Concomitant]
     Indication: SERUM FERRITIN DECREASED
  4. OMEPRAZOLE [Concomitant]
     Dosage: UNK
  5. HYTRIN [Concomitant]
     Dosage: UNK
  6. LIPITOR [Suspect]
     Dosage: 80 MG, 1X/DAY
     Route: 048
  7. IRON [Concomitant]
     Indication: IRON DEFICIENCY ANAEMIA
     Dosage: UNK
  8. LIPITOR [Suspect]
     Indication: BLOOD CHOLESTEROL INCREASED
     Dosage: 20 MG, 1X/DAY
     Route: 048
     Dates: start: 20010101

REACTIONS (5)
  - HAEMATOCRIT DECREASED [None]
  - LYMPHOCYTE COUNT DECREASED [None]
  - HAEMOGLOBIN DECREASED [None]
  - SERUM FERRITIN DECREASED [None]
  - RED BLOOD CELL COUNT DECREASED [None]
